FAERS Safety Report 9259518 (Version 6)
Quarter: 2016Q4

REPORT INFORMATION
  Report Type: Report from Study
  Country: GB (occurrence: GB)
  Receive Date: 20130429
  Receipt Date: 20161206
  Transmission Date: 20170207
  Serious: Yes (Hospitalization)
  Sender: FDA-Public Use
  Company Number: GB-ROCHE-1219056

PATIENT
  Age: 47 Year
  Sex: Female
  Weight: 68 kg

DRUGS (26)
  1. DIAZEPAM. [Concomitant]
     Active Substance: DIAZEPAM
     Route: 048
  2. PARACETAMOL [Concomitant]
     Active Substance: ACETAMINOPHEN
  3. THEOPHYLLINE [Concomitant]
     Active Substance: THEOPHYLLINE ANHYDROUS
     Route: 065
  4. RITUXIMAB [Suspect]
     Active Substance: RITUXIMAB
     Indication: RHEUMATOID ARTHRITIS
     Dosage: LAST DOSE PRIOR TO SAE : 24/OCT/2011
     Route: 042
     Dates: start: 20111010
  5. TERBUTALIN [Concomitant]
     Active Substance: TERBUTALINE
     Route: 065
  6. AMLODIPINE [Concomitant]
     Active Substance: AMLODIPINE BESYLATE
     Route: 065
  7. DOXYCYCLINE. [Concomitant]
     Active Substance: DOXYCYCLINE
  8. ALENDRONIC ACID [Concomitant]
     Active Substance: ALENDRONIC ACID
  9. COLECALCIFEROL [Concomitant]
     Active Substance: CHOLECALCIFEROL
  10. FLUTIFORM [Concomitant]
     Active Substance: FLUTICASONE PROPIONATE\FORMOTEROL FUMARATE
  11. NAPROXEN. [Concomitant]
     Active Substance: NAPROXEN
  12. HYPROMELLOSE [Concomitant]
     Active Substance: HYPROMELLOSES
  13. TAZOCIN [Concomitant]
     Active Substance: PIPERACILLIN SODIUM\TAZOBACTAM SODIUM
     Route: 042
  14. FEXOFENADINE [Concomitant]
     Active Substance: FEXOFENADINE\FEXOFENADINE HYDROCHLORIDE
     Route: 048
  15. METOCLOPRAMIDE. [Concomitant]
     Active Substance: METOCLOPRAMIDE
     Route: 065
  16. AMOXICILLIN. [Concomitant]
     Active Substance: AMOXICILLIN
  17. BUMETANIDE. [Concomitant]
     Active Substance: BUMETANIDE
  18. ZAPAIN [Concomitant]
     Active Substance: ACETAMINOPHEN\CODEINE PHOSPHATE
  19. BUDESONIDE. [Concomitant]
     Active Substance: BUDESONIDE
     Route: 065
  20. CLOMIPRAMINE [Concomitant]
     Active Substance: CLOMIPRAMINE
     Dosage: 25 MG+25 MG
     Route: 048
  21. MONTELUKAST [Concomitant]
     Active Substance: MONTELUKAST SODIUM
     Route: 048
  22. FOLIC ACID. [Concomitant]
     Active Substance: FOLIC ACID
  23. OMEPRAZOLE. [Concomitant]
     Active Substance: OMEPRAZOLE
     Route: 065
  24. PREDNISOLONE. [Concomitant]
     Active Substance: PREDNISOLONE
     Route: 065
  25. IMIPRAMINE [Concomitant]
     Active Substance: IMIPRAMINE
  26. QUETIAPINE. [Concomitant]
     Active Substance: QUETIAPINE

REACTIONS (8)
  - Lower respiratory tract infection [Recovered/Resolved]
  - Pneumonia [Unknown]
  - Asthma [Recovered/Resolved]
  - Intertrigo [Unknown]
  - Lower respiratory tract infection bacterial [Recovered/Resolved]
  - Haemoptysis [Unknown]
  - International normalised ratio increased [Unknown]
  - Pulmonary embolism [Recovered/Resolved]

NARRATIVE: CASE EVENT DATE: 20140815
